FAERS Safety Report 6806692-1 (Version None)
Quarter: 2010Q2

REPORT INFORMATION
  Report Type: 
  Country: None (occurrence: None)
  Receive Date: 20100629
  Receipt Date: 20080414
  Transmission Date: 20101027
  Serious: No
  Sender: FDA-Public Use
  Company Number: US-PFIZER INC-2008032446

PATIENT
  Sex: Female

DRUGS (2)
  1. XANAX [Suspect]
     Indication: NERVOUSNESS
     Dosage: 4 EVERY 1 WEEKS
     Route: 048
  2. PROVIGIL [Suspect]

REACTIONS (1)
  - DRUG INEFFECTIVE [None]
